FAERS Safety Report 11505820 (Version 1)
Quarter: 2015Q3

REPORT INFORMATION
  Report Type: Spontaneous
  Country: US (occurrence: US)
  Receive Date: 20150915
  Receipt Date: 20150915
  Transmission Date: 20151125
  Serious: No
  Sender: FDA-Public Use
  Company Number: US-ROCHE-766321

PATIENT
  Age: 49 Year
  Sex: Female

DRUGS (3)
  1. COPEGUS [Suspect]
     Active Substance: RIBAVIRIN
     Indication: HEPATITIS C
     Route: 065
  2. PEGASYS [Suspect]
     Active Substance: PEGINTERFERON ALFA-2A
     Indication: HEPATITIS C
     Dosage: FORM: PRE-FILLED SYRINGE
     Route: 065
  3. INSULIN [Concomitant]
     Active Substance: INSULIN NOS
     Indication: DIABETES MELLITUS
     Route: 065

REACTIONS (8)
  - Dry mouth [Unknown]
  - Blood glucose abnormal [Not Recovered/Not Resolved]
  - Pain in extremity [Unknown]
  - Hypertension [Unknown]
  - Arthralgia [Unknown]
  - Stomatitis [Unknown]
  - Flatulence [Unknown]
  - Dehydration [Unknown]

NARRATIVE: CASE EVENT DATE: 20110310
